FAERS Safety Report 7877814-9 (Version None)
Quarter: 2011Q4

REPORT INFORMATION
  Report Type: 
  Country: None (occurrence: None)
  Receive Date: 20111031
  Receipt Date: 20111031
  Transmission Date: 20120403
  Serious: Yes (Life-Threatening, Disabling, Other)
  Sender: FDA-Public Use
  Company Number: None

PATIENT
  Age: 94 Year
  Sex: Female
  Weight: 56.699 kg

DRUGS (1)
  1. SEROQUEL [Suspect]
     Dosage: 12.5 MG
     Dates: start: 20110810, end: 20111029

REACTIONS (6)
  - BLOOD GLUCOSE INCREASED [None]
  - MUSCULOSKELETAL STIFFNESS [None]
  - CONFUSIONAL STATE [None]
  - WEIGHT INCREASED [None]
  - MOBILITY DECREASED [None]
  - DISCOMFORT [None]
